FAERS Safety Report 6315051-X (Version None)
Quarter: 2009Q3

REPORT INFORMATION
  Report Type: 
  Country: None (occurrence: None)
  Receive Date: 20090819
  Receipt Date: 20090812
  Transmission Date: 20100115
  Serious: Yes (Hospitalization)
  Sender: FDA-Public Use
  Company Number: PH-JNJFOC-20080700138

PATIENT
  Sex: Female
  Weight: 64 kg

DRUGS (41)
  1. GOLIMUMAB [Suspect]
     Route: 058
  2. GOLIMUMAB [Suspect]
     Route: 058
  3. GOLIMUMAB [Suspect]
     Route: 058
  4. GOLIMUMAB [Suspect]
     Route: 058
  5. GOLIMUMAB [Suspect]
     Route: 058
  6. GOLIMUMAB [Suspect]
     Route: 058
  7. GOLIMUMAB [Suspect]
     Route: 058
  8. GOLIMUMAB [Suspect]
     Route: 058
  9. GOLIMUMAB [Suspect]
     Route: 058
  10. GOLIMUMAB [Suspect]
     Route: 058
  11. GOLIMUMAB [Suspect]
     Route: 058
  12. GOLIMUMAB [Suspect]
     Route: 058
  13. GOLIMUMAB [Suspect]
     Route: 058
  14. GOLIMUMAB [Suspect]
     Route: 058
  15. GOLIMUMAB [Suspect]
     Route: 058
  16. GOLIMUMAB [Suspect]
     Route: 058
  17. GOLIMUMAB [Suspect]
     Route: 058
  18. GOLIMUMAB [Suspect]
     Route: 058
  19. GOLIMUMAB [Suspect]
     Route: 058
  20. GOLIMUMAB [Suspect]
     Route: 058
  21. GOLIMUMAB [Suspect]
     Route: 058
  22. GOLIMUMAB [Suspect]
     Route: 058
  23. GOLIMUMAB [Suspect]
     Route: 058
  24. GOLIMUMAB [Suspect]
     Indication: RHEUMATOID ARTHRITIS
     Route: 058
  25. METHOTREXATE [Suspect]
     Route: 048
  26. METHOTREXATE [Suspect]
     Route: 048
  27. METHOTREXATE [Suspect]
     Route: 048
  28. METHOTREXATE [Suspect]
     Route: 048
  29. METHOTREXATE [Suspect]
     Route: 048
  30. METHOTREXATE [Suspect]
     Indication: RHEUMATOID ARTHRITIS
     Route: 048
  31. METHOTREXATE [Concomitant]
     Route: 048
  32. METHOTREXATE [Concomitant]
     Route: 048
  33. METHOTREXATE [Concomitant]
     Route: 048
  34. CALCI-ACID [Concomitant]
     Route: 048
  35. DIAMICRON MR [Concomitant]
     Route: 048
  36. DOLCET [Concomitant]
     Route: 048
  37. PREDNISONE [Concomitant]
     Route: 048
  38. LIPITOR [Concomitant]
     Route: 048
  39. LIFEZAAR [Concomitant]
     Route: 048
  40. BONIVA [Concomitant]
     Route: 048
  41. FOLIC ACID [Concomitant]
     Route: 048

REACTIONS (1)
  - PULMONARY TUBERCULOSIS [None]
